FAERS Safety Report 18780360 (Version 5)
Quarter: 2022Q3

REPORT INFORMATION
  Report Type: Report from Study
  Country: CN (occurrence: CN)
  Receive Date: 20210125
  Receipt Date: 20220814
  Transmission Date: 20221026
  Serious: Yes (Hospitalization, Other)
  Sender: FDA-Public Use
  Company Number: NVSC2021CN014971

PATIENT
  Age: 60 Year
  Sex: Female
  Weight: 57 kg

DRUGS (2)
  1. ZYKADIA [Suspect]
     Active Substance: CERITINIB
     Indication: Non-small cell lung cancer
     Dosage: 450 MG, QD (450MG/D)
     Route: 048
     Dates: start: 20190614
  2. ZYKADIA [Suspect]
     Active Substance: CERITINIB
     Indication: Lung adenocarcinoma
     Dosage: UNK, QD
     Route: 065

REACTIONS (9)
  - Bacterial infection [Recovered/Resolved]
  - Pyrexia [Recovered/Resolved]
  - Inflammation [Recovered/Resolved]
  - Cholecystitis [Unknown]
  - Pyrexia [Unknown]
  - Abdominal pain [Unknown]
  - Infection [Recovered/Resolved]
  - Pleural effusion [Recovered/Resolved]
  - Lung hypoinflation [Recovered/Resolved]

NARRATIVE: CASE EVENT DATE: 20201226
